FAERS Safety Report 6135819-2 (Version None)
Quarter: 2009Q1

REPORT INFORMATION
  Report Type: 
  Country: None (occurrence: None)
  Receive Date: 20090327
  Receipt Date: 20090319
  Transmission Date: 20090719
  Serious: Yes (Death)
  Sender: FDA-Public Use
  Company Number: JP-B.I. PHARMACEUTICALS,INC./RIDGEFIELD-2009-DE-02434GD

PATIENT
  Age: 3 Month
  Sex: Male

DRUGS (2)
  1. DIPYRIDAMOLE [Suspect]
     Indication: THROMBOSIS PROPHYLAXIS
     Dosage: 3 MG/KG
     Route: 048
  2. WARFARIN SODIUM [Suspect]
     Indication: THROMBOSIS PROPHYLAXIS
     Dosage: 0.02 MG/KG

REACTIONS (1)
  - PULMONARY VEIN OCCLUSION [None]
